FAERS Safety Report 19170277 (Version 2)
Quarter: 2021Q2

REPORT INFORMATION
  Report Type: Report from Study
  Country: US (occurrence: US)
  Receive Date: 20210422
  Receipt Date: 20210519
  Transmission Date: 20210717
  Serious: Yes (Death, Life-Threatening, Hospitalization, Other)
  Sender: FDA-Public Use
  Company Number: US-GILEAD-2021-0525272

PATIENT
  Age: 42 Year
  Sex: Female

DRUGS (4)
  1. MORPHINE [Concomitant]
     Active Substance: MORPHINE
  2. ATIVAN [Concomitant]
     Active Substance: LORAZEPAM
  3. SOFOSBUVIR W/VELPATASVIR [Suspect]
     Active Substance: SOFOSBUVIR\VELPATASVIR
     Indication: CHRONIC HEPATITIS C
     Dosage: 1 DOSAGE FORM, QD
     Route: 048
  4. SCOPOLAMINE AMINOXIDE [Concomitant]
     Active Substance: SCOPOLAMINE N-OXIDE

REACTIONS (5)
  - Peritonitis [Fatal]
  - Chronic hepatic failure [Fatal]
  - Ascites [Not Recovered/Not Resolved]
  - Hepatitis C [Unknown]
  - Cirrhosis alcoholic [Not Recovered/Not Resolved]

NARRATIVE: CASE EVENT DATE: 20210114
